FAERS Safety Report 5025144-5 (Version None)
Quarter: 2006Q2

REPORT INFORMATION
  Report Type: 
  Country: None (occurrence: None)
  Receive Date: 20060613
  Receipt Date: 20060609
  Transmission Date: 20061013
  Serious: Yes (Other)
  Sender: FDA-Public Use
  Company Number: PHBS2006BE08647

PATIENT
  Age: 38 Year
  Sex: Female

DRUGS (4)
  1. SULFASALAZINE [Concomitant]
     Indication: SPONDYLITIS
  2. OMEPRAZOL [Concomitant]
  3. PIROXICAM [Concomitant]
     Indication: SPONDYLITIS
  4. LAMISIL [Suspect]
     Indication: NAIL TINEA
     Dosage: 250 MG/D
     Route: 048
     Dates: start: 20060501, end: 20060603

REACTIONS (3)
  - PALPITATIONS [None]
  - SOMNOLENCE [None]
  - URTICARIA [None]
